FAERS Safety Report 24814356 (Version 1)
Quarter: 2025Q1

REPORT INFORMATION
  Report Type: Spontaneous
  Country: US (occurrence: US)
  Receive Date: 20250107
  Receipt Date: 20250107
  Transmission Date: 20250409
  Serious: No
  Sender: Kenvue
  Company Number: US-KENVUE-20241204915

PATIENT
  Sex: Female

DRUGS (1)
  1. ZYRTEC [Suspect]
     Active Substance: CETIRIZINE HYDROCHLORIDE
     Indication: Accidental exposure to product
     Route: 048
     Dates: start: 2021

REACTIONS (2)
  - Accidental overdose [Unknown]
  - Wrong product administered [Unknown]

NARRATIVE: CASE EVENT DATE: 20241212
